FAERS Safety Report 4425863-5 (Version None)
Quarter: 2004Q3

REPORT INFORMATION
  Report Type: 
  Country: None (occurrence: None)
  Receive Date: 20040719
  Receipt Date: 20040422
  Transmission Date: 20050211
  Serious: No
  Sender: FDA-Public Use
  Company Number: A03200401248

PATIENT
  Age: 55 Year
  Sex: Male
  Weight: 99.7913 kg

DRUGS (3)
  1. UROXATRAL [Suspect]
     Indication: BENIGN PROSTATIC HYPERPLASIA
     Dosage: 10 MG OD - ORAL
     Route: 048
     Dates: start: 20040414
  2. SEPTRA DS [Suspect]
     Indication: PROPHYLAXIS
     Dosage: 800/160MG; BID, 1600/320 MG/DAY - ORAL
     Route: 048
     Dates: start: 20040414
  3. CHLORDIAEPOXIDE+CLIDINIUM [Concomitant]

REACTIONS (3)
  - BACK PAIN [None]
  - FATIGUE [None]
  - MUSCLE SPASMS [None]
